FAERS Safety Report 7716916-4 (Version None)
Quarter: 2011Q3

REPORT INFORMATION
  Report Type: 
  Country: None (occurrence: None)
  Receive Date: 20110829
  Receipt Date: 20110815
  Transmission Date: 20111222
  Serious: Yes (Other)
  Sender: FDA-Public Use
  Company Number: US-ELI_LILLY_AND_COMPANY-US201107003491

PATIENT
  Sex: Female

DRUGS (10)
  1. CALCITONIN SALMON [Concomitant]
  2. FORTEO [Suspect]
     Indication: OSTEOPOROSIS
     Dosage: 20 UG, QD
     Route: 065
     Dates: start: 20110610
  3. PERIACTIN [Concomitant]
  4. MULTIVITAMINS PLUS IRON [Concomitant]
  5. ULTRAM [Concomitant]
  6. TRICHLON [Concomitant]
  7. CALTRATE                           /00944201/ [Concomitant]
  8. VITAMIN D [Concomitant]
  9. FISH OIL [Concomitant]
  10. POTASSIUM [Concomitant]

REACTIONS (9)
  - MALAISE [None]
  - ANEURYSM [None]
  - BACK PAIN [None]
  - DRUG DOSE OMISSION [None]
  - FEELING OF BODY TEMPERATURE CHANGE [None]
  - TREMOR [None]
  - DECREASED APPETITE [None]
  - BODY TEMPERATURE DECREASED [None]
  - NAUSEA [None]
